FAERS Safety Report 18593132 (Version 1)
Quarter: 2020Q4

REPORT INFORMATION
  Report Type: Spontaneous
  Country: JP (occurrence: JP)
  Receive Date: 20201209
  Receipt Date: 20201209
  Transmission Date: 20210114
  Serious: Yes (Other)
  Sender: FDA-Public Use
  Company Number: JP-SUN PHARMACEUTICAL INDUSTRIES LTD-2020RR-270170

PATIENT
  Age: 45 Year
  Sex: Male

DRUGS (4)
  1. CARBOPLATIN. [Suspect]
     Active Substance: CARBOPLATIN
     Indication: LUNG NEOPLASM MALIGNANT
     Dosage: CBDCA, AREA UNDER THE CURVE OF 2
     Route: 065
  2. DOCETAXEL. [Suspect]
     Active Substance: DOCETAXEL
     Indication: METASTASES TO LIVER
     Dosage: 60 MILLIGRAM/SQ. METER, UNK
     Route: 065
  3. PACLITAXEL. [Suspect]
     Active Substance: PACLITAXEL
     Indication: LUNG NEOPLASM MALIGNANT
     Dosage: 40 MILLIGRAM/SQ. METER, WEEKLY
     Route: 065
  4. PEMETREXED. [Suspect]
     Active Substance: PEMETREXED
     Indication: METASTASES TO LIVER
     Dosage: 500 MILLIGRAM/SQ. METER, UNK
     Route: 065

REACTIONS (7)
  - Neutropenia [Unknown]
  - Disease progression [Unknown]
  - Leukopenia [Unknown]
  - Lymphopenia [Unknown]
  - Oesophagitis [Unknown]
  - Constipation [Unknown]
  - Nausea [Unknown]
